FAERS Safety Report 8511489-0 (Version None)
Quarter: 2012Q3

REPORT INFORMATION
  Report Type: 
  Country: None (occurrence: None)
  Receive Date: 20120711
  Receipt Date: 20120711
  Transmission Date: 20120928
  Serious: Yes (Life-Threatening, Hospitalization, Disabling, Other)
  Sender: FDA-Public Use
  Company Number: None

PATIENT
  Age: 30 Year
  Sex: Male
  Weight: 68.0396 kg

DRUGS (1)
  1. OPANA [Suspect]
     Indication: PAIN
     Dosage: 40 MG ER 3 X DAILY ORAL A FEW MONTHS
     Route: 048

REACTIONS (3)
  - MEDICATION RESIDUE [None]
  - PRODUCT FORMULATION ISSUE [None]
  - DRUG INEFFECTIVE [None]
